FAERS Safety Report 6645831-2 (Version None)
Quarter: 2010Q1

REPORT INFORMATION
  Report Type: 
  Country: None (occurrence: None)
  Receive Date: 20100318
  Receipt Date: 20100318
  Transmission Date: 20100710
  Serious: Yes (Hospitalization)
  Sender: FDA-Public Use
  Company Number: None

PATIENT
  Age: 92 Year
  Sex: Female

DRUGS (4)
  1. WARFARIN NOT REPORTED NOT REPORTED [Suspect]
     Indication: ATRIAL FIBRILLATION
     Dosage: NOT REPORTED DAILY PO
     Route: 048
  2. DIGOXIN [Suspect]
     Indication: THROMBOSIS PROPHYLAXIS
     Dosage: 0.25MG DAILY PO
     Route: 048
     Dates: end: 20100226
  3. ATORVASTATIN CALCIUM [Concomitant]
  4. ASPIRIN [Concomitant]

REACTIONS (9)
  - ANAEMIA [None]
  - ASTHENIA [None]
  - GASTRIC POLYPS [None]
  - GASTRITIS [None]
  - GASTROINTESTINAL HAEMORRHAGE [None]
  - INTERNATIONAL NORMALISED RATIO INCREASED [None]
  - OESOPHAGITIS [None]
  - RENAL FAILURE [None]
  - THERAPEUTIC AGENT TOXICITY [None]
